FAERS Safety Report 7209321-0 (Version None)
Quarter: 2011Q1

REPORT INFORMATION
  Report Type: 
  Country: None (occurrence: None)
  Receive Date: 20110104
  Receipt Date: 20101227
  Transmission Date: 20110831
  Serious: Yes (Death, Other)
  Sender: FDA-Public Use
  Company Number: JP-ROCHE-750817

PATIENT

DRUGS (5)
  1. ALL-TRANS-RETINOIC ACID [Suspect]
     Indication: ACUTE PROMYELOCYTIC LEUKAEMIA
     Route: 065
  2. ACLARUBICIN [Suspect]
     Indication: ACUTE PROMYELOCYTIC LEUKAEMIA
     Route: 065
  3. CYTARABINE [Suspect]
     Indication: ACUTE PROMYELOCYTIC LEUKAEMIA
     Route: 065
  4. MITOXANTRONE [Suspect]
     Indication: ACUTE PROMYELOCYTIC LEUKAEMIA
     Route: 065
  5. PIRARUBICIN [Suspect]
     Indication: ACUTE PROMYELOCYTIC LEUKAEMIA
     Route: 065

REACTIONS (19)
  - PULMONARY HAEMORRHAGE [None]
  - HERPES ZOSTER [None]
  - DYSURIA [None]
  - ELECTROCARDIOGRAM QT PROLONGED [None]
  - CONVULSION [None]
  - RETINOIC ACID SYNDROME [None]
  - HEADACHE [None]
  - HAEMORRHAGE INTRACRANIAL [None]
  - RETINAL HAEMORRHAGE [None]
  - SEPSIS [None]
  - BRONCHOPNEUMONIA [None]
  - DISSEMINATED INTRAVASCULAR COAGULATION [None]
  - MENINGITIS [None]
  - NEUTROPENIA [None]
  - CELLULITIS [None]
  - ALTERED STATE OF CONSCIOUSNESS [None]
  - PSEUDOMONAL SEPSIS [None]
  - ENTERITIS [None]
  - NAUSEA [None]
